FAERS Safety Report 7576993-0 (Version None)
Quarter: 2011Q2

REPORT INFORMATION
  Report Type: 
  Country: None (occurrence: None)
  Receive Date: 20110628
  Receipt Date: 20110531
  Transmission Date: 20111010
  Serious: Yes (Hospitalization, Other)
  Sender: FDA-Public Use
  Company Number: US-BAYER-201037006NA

PATIENT
  Age: 40 Year
  Sex: Female
  Weight: 129.25 kg

DRUGS (5)
  1. IBUPROFEN [Concomitant]
  2. YAZ [Suspect]
     Indication: CONTRACEPTION
     Route: 048
  3. SKELAXIN [Concomitant]
     Dosage: 800 MG, UNK
  4. OXYCODONE HCL AND ACETAMINOPHEN [Concomitant]
     Dosage: UNK
  5. ZITHROMAX [Concomitant]
     Indication: BRONCHITIS
     Dosage: UNK
     Dates: start: 20081201

REACTIONS (5)
  - INJURY [None]
  - DEEP VEIN THROMBOSIS [None]
  - PULMONARY EMBOLISM [None]
  - PAIN [None]
  - EMOTIONAL DISTRESS [None]
